FAERS Safety Report 24063476 (Version 2)
Quarter: 2024Q3

REPORT INFORMATION
  Report Type: Spontaneous
  Country: US (occurrence: US)
  Receive Date: 20240709
  Receipt Date: 20240709
  Transmission Date: 20241017
  Serious: Yes (Other)
  Sender: SANOFI AVENTIS
  Company Number: US-SA-SAC20240704000053

PATIENT
  Age: 72 Year
  Sex: Male

DRUGS (10)
  1. TAXOTERE [Suspect]
     Active Substance: DOCETAXEL
     Dosage: UNK
     Route: 065
     Dates: start: 2016
  2. TAXOTERE [Suspect]
     Active Substance: DOCETAXEL
     Dosage: UNK
     Dates: start: 2017
  3. TAXOTERE [Suspect]
     Active Substance: DOCETAXEL
     Dosage: UNK
     Dates: start: 20211108
  4. CABAZITAXEL [Suspect]
     Active Substance: CABAZITAXEL
     Dosage: UNK
  5. ZOMETA [Suspect]
     Active Substance: ZOLEDRONIC ACID
     Dosage: UNK
     Dates: start: 20211108
  6. XTANDI [Suspect]
     Active Substance: ENZALUTAMIDE
     Dosage: UNK
     Dates: end: 202306
  7. ABIRATERONE [Suspect]
     Active Substance: ABIRATERONE
     Dosage: UNK
  8. PLUVICTO [Suspect]
     Active Substance: LUTETIUM LU-177 VIPIVOTIDE TETRAXETAN
     Dosage: UNK
     Dates: start: 202312, end: 202403
  9. AMITRIPTYLINE HYDROCHLORIDE [Suspect]
     Active Substance: AMITRIPTYLINE HYDROCHLORIDE
     Dosage: UNK
  10. PREDNISONE [Suspect]
     Active Substance: PREDNISONE

REACTIONS (3)
  - Cytopenia [Unknown]
  - Tachycardia [Unknown]
  - Prostatic specific antigen increased [Unknown]
